FAERS Safety Report 9505538 (Version 1)
Quarter: 2013Q1

REPORT INFORMATION
  Report Type: Spontaneous
  Country: US (occurrence: None)
  Receive Date: 20130220
  Receipt Date: 20130220
  Transmission Date: 20140127
  Serious: No
  Sender: FDA-Public Use
  Company Number: 1000040307

PATIENT
  Age: 60 Year
  Sex: Female

DRUGS (8)
  1. VIIBYRD [Suspect]
     Indication: DEPRESSION
     Dosage: 10 MG (10 MG, 1 IN 1 D), ORAL
     Route: 048
     Dates: start: 2012, end: 2012
  2. VIIBYRD [Suspect]
     Indication: DEPRESSION
     Dosage: 40 MG (40 MG, 1 IN 1 D), ORAL
     Route: 048
     Dates: start: 2012, end: 20121031
  3. VIIBYRD [Suspect]
     Indication: DEPRESSION
     Dosage: 40 MG (40 MG, 1 IN 1 D), ORAL
     Route: 048
     Dates: start: 20121105, end: 20121105
  4. XANAX (ALPRAZOLAM) (ALPRAZOLAM) [Concomitant]
  5. HYDROCODONE (HYDROCODONE) (HYDROCODONE) [Concomitant]
  6. ATORVASTATIN (ATORVASTATIN) (ATORVASTATIN) [Concomitant]
  7. ATENOLOL/HYDROCHLOROTHIAZIDE (ATENOLOL/HYDROCHLOROTHIAZIDE) ( [Concomitant]
  8. ATENOLOL/HYDROCHLOROTHIAZIDE (ATENOLOL/HYDROCHLOROTHIAZIDE) (ATENOLOL/HYDROCHLOROTHIAZIDE) [Concomitant]

REACTIONS (7)
  - Swelling [None]
  - Pain in extremity [None]
  - Paraesthesia [None]
  - Panic attack [None]
  - Palpitations [None]
  - Hyperhidrosis [None]
  - Dyspnoea [None]
